FAERS Safety Report 6520950-X (Version None)
Quarter: 2009Q4

REPORT INFORMATION
  Report Type: 
  Country: None (occurrence: None)
  Receive Date: 20091229
  Receipt Date: 20091216
  Transmission Date: 20100525
  Serious: Yes (Other)
  Sender: FDA-Public Use
  Company Number: FR-AMGEN-US356569

PATIENT
  Sex: Female

DRUGS (2)
  1. ENBREL [Suspect]
     Indication: ANKYLOSING SPONDYLITIS
     Route: 058
     Dates: start: 20090113, end: 20090601
  2. ENBREL [Suspect]
     Route: 058
     Dates: start: 20090601, end: 20091101

REACTIONS (8)
  - ANKYLOSING SPONDYLITIS [None]
  - BONE EROSION [None]
  - CONDITION AGGRAVATED [None]
  - JOINT LOCK [None]
  - JOINT STIFFNESS [None]
  - LOOSE TOOTH [None]
  - PAIN IN JAW [None]
  - TOOTH INFECTION [None]
